FAERS Safety Report 9057237 (Version 1)
Quarter: 2013Q1

REPORT INFORMATION
  Report Type: Spontaneous
  Country: US (occurrence: US)
  Receive Date: 20130131
  Receipt Date: 20130131
  Transmission Date: 20140127
  Serious: Yes (Hospitalization)
  Sender: FDA-Public Use
  Company Number: US-GLAXOSMITHKLINE-A1010132A

PATIENT
  Age: 53 Year
  Sex: Male

DRUGS (1)
  1. AVANDIA [Suspect]
     Indication: DIABETES MELLITUS
     Route: 065
     Dates: start: 2004, end: 2008

REACTIONS (4)
  - Cardiac failure congestive [Not Recovered/Not Resolved]
  - Hepatic cirrhosis [Unknown]
  - Coronary artery disease [Unknown]
  - Hepatobiliary cancer [Unknown]
